FAERS Safety Report 18019859 (Version 4)
Quarter: 2020Q4

REPORT INFORMATION
  Report Type: Spontaneous
  Country: US (occurrence: US)
  Receive Date: 20200714
  Receipt Date: 20201016
  Transmission Date: 20210113
  Serious: Yes (Other)
  Sender: FDA-Public Use
  Company Number: US-PFIZER INC-2020267066

PATIENT
  Age: 84 Year
  Sex: Female

DRUGS (3)
  1. IBRANCE [Suspect]
     Active Substance: PALBOCICLIB
     Dosage: 125 MG, CYCLIC
     Dates: start: 20200525, end: 2020
  2. IBRANCE [Suspect]
     Active Substance: PALBOCICLIB
     Dosage: 125 MG, CYCLIC (DAILY FOR 7 DAYS ON AND 7 DAYS OFF)
     Dates: start: 20200611, end: 2020
  3. IBRANCE [Suspect]
     Active Substance: PALBOCICLIB
     Dosage: 125 MG
     Dates: start: 20200911, end: 2020

REACTIONS (10)
  - White blood cell count decreased [Unknown]
  - Weight decreased [Unknown]
  - Off label use [Unknown]
  - Stomatitis [Unknown]
  - Illness [Unknown]
  - Lung disorder [Unknown]
  - Nausea [Not Recovered/Not Resolved]
  - Decreased appetite [Not Recovered/Not Resolved]
  - Product use issue [Unknown]
  - Fatigue [Unknown]

NARRATIVE: CASE EVENT DATE: 2020
